FAERS Safety Report 8836684 (Version 1)
Quarter: 2012Q4

REPORT INFORMATION
  Report Type: Spontaneous
  Country: TR (occurrence: None)
  Receive Date: 20121009
  Receipt Date: 20121009
  Transmission Date: 20130627
  Serious: Yes (Life-Threatening)
  Sender: FDA-Public Use
  Company Number: FK201202854

PATIENT
  Age: 55 Year
  Sex: Male

DRUGS (1)
  1. CEFTRIAXON (MANUFACTURER UNKNOWN) (CEFTRIAXON-DINATRIUM) (CEFTRIAXON-DINATRIUM) [Suspect]
     Indication: URINARY TRACT INFECTION
     Route: 042

REACTIONS (6)
  - Cyanosis [None]
  - Hypotension [None]
  - Circulatory collapse [None]
  - Respiratory failure [None]
  - Cardiac arrest [None]
  - Anaphylactic reaction [None]
